FAERS Safety Report 9883572 (Version 3)
Quarter: 2019Q3

REPORT INFORMATION
  Report Type: Spontaneous
  Country: CA (occurrence: CA)
  Receive Date: 20140210
  Receipt Date: 20190704
  Transmission Date: 20191005
  Serious: Yes (Death, Hospitalization, Other)
  Sender: FDA-Public Use
  Company Number: CA-AMGEN-CANSP2014008243

PATIENT
  Age: 76 Year
  Sex: Male
  Weight: 84.8 kg

DRUGS (22)
  1. JAMP VITAMIN D3 [Concomitant]
     Dosage: 10000 UNIT, 1 TABLET QWK
     Dates: start: 20130514
  2. APO NADOL [Concomitant]
     Active Substance: NADOLOL
     Dosage: 40 MG, 1/2 TO 1 TABLET PER DAY IF NEEDED
     Dates: start: 20130416
  3. FOLIC ACID. [Concomitant]
     Active Substance: FOLIC ACID
     Dosage: UNK
  4. APO-PREDNISONE [Concomitant]
     Active Substance: PREDNISONE
     Dosage: 5 MG, 1/2 TABLET QD MORNING AT BREAKFAST (CORTISONE)
     Dates: start: 20130514
  5. MINT AMLODIPINE [Concomitant]
     Indication: SLEEP DISORDER
     Dosage: ONE TABLET ONCE A DAY
     Dates: start: 20130514
  6. DOMPERIDONE [Concomitant]
     Active Substance: DOMPERIDONE
     Dosage: 10 MICROGRAM, TID
  7. RAN DOMPERIDONE [Concomitant]
     Dosage: 10 MUG, TID
     Dates: start: 20121205
  8. PANTOPRAZOLE [Concomitant]
     Active Substance: PANTOPRAZOLE
     Dosage: 40 MG, 1 TABLET QD
     Dates: start: 20121205
  9. FLUOROURACIL. [Concomitant]
     Active Substance: FLUOROURACIL
     Dosage: 5 PERCENT, BID
     Route: 061
  10. METHOTREXATE. [Suspect]
     Active Substance: METHOTREXATE
     Indication: RHEUMATOID ARTHRITIS
     Dosage: UNK
     Route: 065
     Dates: start: 2006, end: 2013
  11. CORTISONE [Suspect]
     Active Substance: CORTISONE
     Indication: PRODUCT USED FOR UNKNOWN INDICATION
     Dosage: UNK
     Route: 065
  12. JAMP FOLIC ACID [Concomitant]
     Dosage: 5 MG, QWK NEXT DAY FOLLOWING METHOREXATE DOSE
     Dates: start: 20130514
  13. CHOLECALCIFEROL [Concomitant]
     Active Substance: CHOLECALCIFEROL
     Dosage: UNK
  14. ALPRAZOLAM. [Concomitant]
     Active Substance: ALPRAZOLAM
  15. ENBREL [Suspect]
     Active Substance: ETANERCEPT
     Indication: RHEUMATOID ARTHRITIS
     Dosage: 50 MG, QWK
     Route: 058
     Dates: start: 20090221
  16. APO ALPRAZ [Concomitant]
     Dosage: 0.5 MG, 1/2 TABLET TO 1 TABLET IF NEEDED
     Dates: start: 20130416
  17. FLOVENT [Concomitant]
     Active Substance: FLUTICASONE PROPIONATE
     Dosage: 250 MCG/DOSE, 2 INHALATIONS TWO TIMES PER DAY
     Dates: start: 20130524
  18. AMLODIPINE BESILATE [Concomitant]
     Active Substance: AMLODIPINE BESYLATE
     Indication: SLEEP DISORDER
     Dosage: 5 MILLIGRAM, QD
  19. EFUDEX [Concomitant]
     Active Substance: FLUOROURACIL
     Dosage: 5 %, BID MORNING AND EVENING FOR 21 DAYS
     Route: 061
     Dates: start: 20130516
  20. REMICADE [Concomitant]
     Active Substance: INFLIXIMAB
     Route: 042
  21. NADOLOL. [Concomitant]
     Active Substance: NADOLOL
     Dosage: UNK
  22. VITAMIN D3 [Concomitant]
     Active Substance: CHOLECALCIFEROL

REACTIONS (3)
  - General physical health deterioration [Fatal]
  - Osteoarthritis [Fatal]
  - Metastases to liver [Fatal]

NARRATIVE: CASE EVENT DATE: 20120712
